FAERS Safety Report 11983266 (Version 6)
Quarter: 2016Q2

REPORT INFORMATION
  Report Type: Report from Study
  Country: CN (occurrence: CN)
  Receive Date: 20160201
  Receipt Date: 20160601
  Transmission Date: 20160815
  Serious: Yes (Other)
  Sender: FDA-Public Use
  Company Number: CN-PFIZER INC-2016040149

PATIENT
  Age: 65 Year
  Sex: Female
  Weight: 73 kg

DRUGS (11)
  1. TIOPRONIN [Concomitant]
     Active Substance: TIOPRONIN
     Indication: LIVER INJURY
     Dosage: 200 MG, 1X/DAY
     Route: 042
     Dates: start: 20151231, end: 20160107
  2. MAGNESIUM OXALATE [Concomitant]
     Dosage: 200 MG, 1X/DAY
     Route: 041
     Dates: start: 20160122, end: 20160128
  3. LETROZOLE. [Suspect]
     Active Substance: LETROZOLE
     Dosage: 2.5 MG, ONCE DAILY
     Route: 048
     Dates: start: 20160116, end: 20160122
  4. MAGNESIUM OXALATE [Concomitant]
     Indication: LIVER INJURY
     Dosage: 100 MG, 1X/DAY
     Route: 041
     Dates: start: 20160107, end: 20160121
  5. PALBOCICLIB [Suspect]
     Active Substance: PALBOCICLIB
     Indication: BREAST CANCER
     Dosage: 125 MG, ONCE DAILY, CYCLIC
     Route: 048
     Dates: start: 20151120, end: 20151231
  6. BICYCLOL [Concomitant]
     Active Substance: BICYCLOL
     Indication: LIVER INJURY
     Dosage: 50 MG, 3X/DAY
     Route: 048
     Dates: start: 20151231
  7. PALBOCICLIB [Suspect]
     Active Substance: PALBOCICLIB
     Dosage: 100 MG, ONCE DAILY, CYCLIC
     Route: 048
     Dates: start: 20160116, end: 20160122
  8. PALBOCICLIB [Suspect]
     Active Substance: PALBOCICLIB
     Dosage: 75 MG, ONCE DAILY, CYCLIC
     Route: 048
     Dates: start: 20160216
  9. LETROZOLE. [Suspect]
     Active Substance: LETROZOLE
     Indication: BREAST CANCER
     Dosage: 2.5 MG, ONCE DAILY
     Route: 048
     Dates: start: 20151120, end: 20151231
  10. LETROZOLE. [Suspect]
     Active Substance: LETROZOLE
     Dosage: 2.5 MG, 1X/DAY
     Route: 048
     Dates: start: 20160203
  11. GLUTATHIONE [Concomitant]
     Active Substance: GLUTATHIONE
     Indication: LIVER INJURY
     Dosage: 1200 MG, 1X/DAY
     Route: 041
     Dates: start: 20160114, end: 20160128

REACTIONS (1)
  - Liver injury [Recovered/Resolved]

NARRATIVE: CASE EVENT DATE: 20160122
